FAERS Safety Report 5772447-2 (Version None)
Quarter: 2008Q2

REPORT INFORMATION
  Report Type: 
  Country: None (occurrence: None)
  Receive Date: 20080613
  Receipt Date: 20080604
  Transmission Date: 20081010
  Serious: Yes (Hospitalization)
  Sender: FDA-Public Use
  Company Number: JP-ELI_LILLY_AND_COMPANY-JP200804005610

PATIENT
  Sex: Male
  Weight: 49 kg

DRUGS (11)
  1. HUMULIN R [Suspect]
     Indication: DIABETES MELLITUS
     Dosage: 2 U, DAILY (1/D)
     Route: 042
     Dates: start: 20080407, end: 20080407
  2. HUMULIN R [Suspect]
     Dosage: 10 U, DAILY (1/D)
     Route: 042
     Dates: start: 20080408, end: 20080416
  3. HUMULIN R [Suspect]
     Dosage: 13 U, DAILY (1/D)
     Route: 058
     Dates: start: 20080417, end: 20080424
  4. VITAMEDIN [Concomitant]
     Dosage: 1 D/F, DAILY (1/D)
     Route: 042
     Dates: start: 20080407, end: 20080416
  5. ASCORBIC ACID [Concomitant]
     Dosage: 1 D/F, DAILY (1/D)
     Route: 042
     Dates: start: 20080407, end: 20080416
  6. FAMOTIDINE [Concomitant]
     Dosage: 20 MG, DAILY (1/D)
     Route: 042
     Dates: start: 20080407, end: 20080415
  7. WYSTAL [Concomitant]
     Dosage: 2 G, DAILY (1/D)
     Route: 042
     Dates: start: 20080407, end: 20080414
  8. HIRUDOID [Concomitant]
  9. ALESION [Concomitant]
     Dosage: 1 D/F, DAILY (1/D)
     Route: 048
     Dates: start: 20080414, end: 20080418
  10. ALLOID G [Concomitant]
     Route: 048
     Dates: start: 20080415
  11. EXCELASE [Concomitant]
     Route: 048
     Dates: start: 20080415

REACTIONS (1)
  - HEPATIC FUNCTION ABNORMAL [None]
